FAERS Safety Report 7574802-7 (Version None)
Quarter: 2011Q2

REPORT INFORMATION
  Report Type: 
  Country: None (occurrence: None)
  Receive Date: 20110627
  Receipt Date: 20110620
  Transmission Date: 20111010
  Serious: Yes (Other)
  Sender: FDA-Public Use
  Company Number: IT-SANOFI-AVENTIS-2011SA034141

PATIENT
  Age: 58 Year
  Sex: Male

DRUGS (4)
  1. XELODA [Suspect]
     Dosage: CYCLICAL
     Route: 048
     Dates: start: 20090615, end: 20090727
  2. OXALIPLATIN [Suspect]
     Dosage: CYCLICAL
     Route: 065
     Dates: start: 20090728, end: 20091021
  3. OXALIPLATIN [Suspect]
     Dosage: CYCLICAL
     Route: 065
     Dates: start: 20090615, end: 20090727
  4. XELODA [Suspect]
     Dosage: CYCLICAL
     Route: 048
     Dates: start: 20090728, end: 20091021

REACTIONS (5)
  - ASTHENIA [None]
  - BLOOD IRON INCREASED [None]
  - PARAESTHESIA [None]
  - ANAEMIA [None]
  - THROMBOCYTOPENIA [None]
